FAERS Safety Report 21664509 (Version 1)
Quarter: 2022Q4

REPORT INFORMATION
  Report Type: Report from Study
  Country: US (occurrence: US)
  Receive Date: 20221130
  Receipt Date: 20221130
  Transmission Date: 20230112
  Serious: No
  Sender: FDA-Public Use
  Company Number: US-ABBVIE-4218670

PATIENT
  Sex: Female

DRUGS (1)
  1. IMBRUVICA [Suspect]
     Active Substance: IBRUTINIB
     Indication: Chronic lymphocytic leukaemia
     Route: 048
     Dates: start: 20220823

REACTIONS (5)
  - Skin exfoliation [Unknown]
  - Dry eye [Unknown]
  - Visual impairment [Unknown]
  - Diarrhoea [Unknown]
  - Haemorrhoids [Unknown]
